FAERS Safety Report 9927831 (Version 1)
Quarter: 2014Q1

REPORT INFORMATION
  Report Type: Spontaneous
  Country: US (occurrence: US)
  Receive Date: 20140227
  Receipt Date: 20140227
  Transmission Date: 20141002
  Serious: Yes (Hospitalization)
  Sender: FDA-Public Use
  Company Number: US-JNJFOC-20140210924

PATIENT
  Sex: Female

DRUGS (2)
  1. DURAGESIC [Suspect]
     Indication: PAIN
     Dosage: 2 X 100 UG/HR PATCHES
     Route: 062
     Dates: start: 1996
  2. DURAGESIC [Suspect]
     Indication: PAIN
     Dosage: 2 X 100 UG/HR PATCHES
     Route: 062

REACTIONS (8)
  - Rash [Not Recovered/Not Resolved]
  - Purpura [Not Recovered/Not Resolved]
  - Pruritus [Not Recovered/Not Resolved]
  - Eye swelling [Not Recovered/Not Resolved]
  - Local swelling [Not Recovered/Not Resolved]
  - Drug dose omission [Recovered/Resolved]
  - Treatment noncompliance [Unknown]
  - Wrong technique in drug usage process [Unknown]
